FAERS Safety Report 8770866 (Version 1)
Quarter: 2012Q4

REPORT INFORMATION
  Report Type: 
  Country: JP (occurrence: JP)
  Receive Date: 20120906
  Receipt Date: 20120906
  Transmission Date: 20130627
  Serious: Yes (Hospitalization, Other)
  Sender: FDA-Public Use
  Company Number: JP-AMGEN-JPNSP2012056120

PATIENT
  Age: 19 Year
  Sex: Female
  Weight: 57 kg

DRUGS (4)
  1. GRAN [Suspect]
     Indication: INFANTILE GENETIC AGRANULOCYTOSIS
     Dosage: Three 1 total dosage 12 millionmcg of ..rest.. ,
     Route: 058
     Dates: start: 199911, end: 20120627
  2. NEUTROGIN [Concomitant]
     Indication: INFANTILE GENETIC AGRANULOCYTOSIS
     Dosage: 20-90mcg and irregularity
     Route: 040
     Dates: start: 19940723, end: 19940929
  3. NEUTROGIN [Concomitant]
     Dosage: 20-90mcg and irregularity
     Route: 058
     Dates: start: 19940723, end: 19940929
  4. NEU-UP [Concomitant]
     Indication: INFANTILE GENETIC AGRANULOCYTOSIS
     Dosage: 75-170mcg and four one Yas
     Route: 058
     Dates: start: 19940930, end: 199911

REACTIONS (1)
  - Myelodysplastic syndrome [Not Recovered/Not Resolved]
